FAERS Safety Report 7393008-8 (Version None)
Quarter: 2011Q2

REPORT INFORMATION
  Report Type: 
  Country: None (occurrence: None)
  Receive Date: 20110404
  Receipt Date: 20110329
  Transmission Date: 20111010
  Serious: Yes (Hospitalization)
  Sender: FDA-Public Use
  Company Number: CH-PFIZER INC-2011069127

PATIENT
  Age: 76 Year
  Sex: Female

DRUGS (1)
  1. LYRICA [Suspect]
     Indication: ANXIETY DISORDER
     Dosage: UNK
     Route: 048
     Dates: end: 20100901

REACTIONS (4)
  - HYPERAESTHESIA [None]
  - DRUG WITHDRAWAL SYNDROME [None]
  - BACK PAIN [None]
  - HEADACHE [None]
